FAERS Safety Report 22339208 (Version 2)
Quarter: 2024Q1

REPORT INFORMATION
  Report Type: Report from Study
  Country: US (occurrence: US)
  Receive Date: 20230518
  Receipt Date: 20240308
  Transmission Date: 20240410
  Serious: Yes (Other)
  Sender: FDA-Public Use
  Company Number: US-JAZZ PHARMACEUTICALS-2023-US-003417

PATIENT
  Sex: Female

DRUGS (6)
  1. XYWAV [Suspect]
     Active Substance: CALCIUM OXYBATE\MAGNESIUM OXYBATE\POTASSIUM OXYBATE\SODIUM OXYBATE
     Indication: Narcolepsy
     Dosage: 3.25 GRAM, BID
     Route: 048
     Dates: start: 20210723
  2. XYWAV [Suspect]
     Active Substance: CALCIUM OXYBATE\MAGNESIUM OXYBATE\POTASSIUM OXYBATE\SODIUM OXYBATE
     Dosage: 3.25 GRAM, QD
  3. XYWAV [Suspect]
     Active Substance: CALCIUM OXYBATE\MAGNESIUM OXYBATE\POTASSIUM OXYBATE\SODIUM OXYBATE
     Dosage: 3.75G AT BEDTIME AND 1.75G FOR THE SECOND DOSE
  4. XYWAV [Suspect]
     Active Substance: CALCIUM OXYBATE\MAGNESIUM OXYBATE\POTASSIUM OXYBATE\SODIUM OXYBATE
     Dosage: 3.25G AT BEDTIME AND 1.75G AT 2AM
  5. TRAZODONE [Suspect]
     Active Substance: TRAZODONE HYDROCHLORIDE
     Indication: Headache
     Dosage: UNK
  6. AIMOVIG [Concomitant]
     Active Substance: ERENUMAB-AOOE
     Indication: Product used for unknown indication
     Dosage: 140 MG/ML AUTOINJECTOR
     Dates: start: 20210101

REACTIONS (8)
  - Serotonin syndrome [Unknown]
  - Throat irritation [Unknown]
  - Sleep disorder [Unknown]
  - Seasonal allergy [Unknown]
  - Cough [Unknown]
  - Headache [Unknown]
  - Sedation [Unknown]
  - Nausea [Not Recovered/Not Resolved]
